FAERS Safety Report 15386817 (Version 1)
Quarter: 2018Q3

REPORT INFORMATION
  Report Type: Spontaneous
  Country: US (occurrence: US)
  Receive Date: 20180914
  Receipt Date: 20180914
  Transmission Date: 20181010
  Serious: No
  Sender: FDA-Public Use
  Company Number: US-ASTRAZENECA-2018SF15392

PATIENT
  Age: 59 Year
  Sex: Female

DRUGS (2)
  1. CHANTIX [Concomitant]
     Active Substance: VARENICLINE TARTRATE
     Dates: start: 20180525
  2. DALIRESP [Suspect]
     Active Substance: ROFLUMILAST
     Indication: CHRONIC OBSTRUCTIVE PULMONARY DISEASE
     Dosage: UNKNOWN
     Route: 048
     Dates: start: 20180501

REACTIONS (1)
  - Hallucination [Unknown]
